FAERS Safety Report 9255077 (Version 3)
Quarter: 2013Q3

REPORT INFORMATION
  Report Type: Spontaneous
  Country: US (occurrence: US)
  Receive Date: 20130425
  Receipt Date: 20130927
  Transmission Date: 20140515
  Serious: Yes (Hospitalization)
  Sender: FDA-Public Use
  Company Number: US-ASTRAZENECA-2013SE27537

PATIENT
  Age: 714 Month
  Sex: Female
  Weight: 86.2 kg

DRUGS (14)
  1. NEXIUM [Suspect]
     Indication: GASTROOESOPHAGEAL REFLUX DISEASE
     Route: 048
     Dates: start: 200602, end: 201011
  2. NEXIUM [Suspect]
     Indication: GASTROOESOPHAGEAL REFLUX DISEASE
     Route: 048
     Dates: start: 200603, end: 201106
  3. NEXIUM [Suspect]
     Indication: GASTROOESOPHAGEAL REFLUX DISEASE
     Route: 048
     Dates: start: 20061102
  4. PROTONIX [Concomitant]
     Indication: GASTRIC DISORDER
     Dates: start: 201304
  5. PEPTO-BISMOL [Concomitant]
     Dosage: 1 TABLESPOON
     Dates: start: 20110315
  6. ROLAIDS [Concomitant]
     Dosage: 2 ONE DAY AND 2 NEXT DAY
     Dates: start: 20120409
  7. LIPITOR [Concomitant]
  8. CALTRATE [Concomitant]
     Dosage: 600
  9. CEPHALEXIN [Concomitant]
     Dates: start: 20070222
  10. NITROFURANTOIN MONOHYD [Concomitant]
     Dates: start: 20061116
  11. LEVOTHYROXINE SODIUM [Concomitant]
     Dates: start: 20070119
  12. CALCIUM [Concomitant]
  13. FORTEO [Concomitant]
  14. LISINOPRIL [Concomitant]

REACTIONS (12)
  - Osteoarthritis [Unknown]
  - Osteogenesis imperfecta [Unknown]
  - Bone density decreased [Unknown]
  - Bone disorder [Unknown]
  - Multiple fractures [Unknown]
  - Fall [Unknown]
  - Cataract [Unknown]
  - Bone pain [Unknown]
  - Calcium deficiency [Unknown]
  - Arthritis [Unknown]
  - Rib fracture [Unknown]
  - Lower limb fracture [Unknown]
